FAERS Safety Report 16570065 (Version 1)
Quarter: 2019Q3

REPORT INFORMATION
  Report Type: Spontaneous
  Country: DE (occurrence: DE)
  Receive Date: 20190715
  Receipt Date: 20190715
  Transmission Date: 20191004
  Serious: Yes (Hospitalization)
  Sender: FDA-Public Use
  Company Number: DE-TEVA-2019-DE-1076715

PATIENT
  Age: 61 Year
  Sex: Female

DRUGS (12)
  1. DICLOFENAC [Concomitant]
     Active Substance: DICLOFENAC
     Dosage: 75 MG, 1-0-1-0
  2. PREGABALIN. [Concomitant]
     Active Substance: PREGABALIN
     Dosage: 75 MG, 2-0-2-1
  3. AMITRIPTYLIN [Concomitant]
     Active Substance: AMITRIPTYLINE
     Dosage: 25 MG, 0-0-1-0
  4. PANTOPRAZOL [Concomitant]
     Active Substance: PANTOPRAZOLE SODIUM
     Dosage: 40 MG, 1-0-0-0
  5. IBUPROFEN. [Concomitant]
     Active Substance: IBUPROFEN
     Dosage: 400 MG, 1-1-1-0
  6. HYDROCHLOROTHIAZID [Concomitant]
     Active Substance: HYDROCHLOROTHIAZIDE
     Dosage: 25 MG, 0.5-0-0-0
  7. CLEXANE 40MG [Concomitant]
     Dosage: 40 MG, 0-0-1-0
  8. CANDESARTAN. [Concomitant]
     Active Substance: CANDESARTAN
     Dosage: 16 MG, 1-0-1-0
  9. LEVOTHYROXIN-NATRIUM [Concomitant]
     Active Substance: LEVOTHYROXINE SODIUM
     Dosage: 100 ?G, 1-0-0-0
  10. PACLITAXEL. [Suspect]
     Active Substance: PACLITAXEL
     Dosage: NK MG, NK
  11. PRAMIPEXOL [Concomitant]
     Active Substance: PRAMIPEXOLE
     Dosage: 0.35 MG, 0-0-0-1
  12. PREDNITOP [Concomitant]
     Dosage: NK MG, 1-0-1-0

REACTIONS (2)
  - Catheter site swelling [Unknown]
  - Pain [Unknown]

NARRATIVE: CASE EVENT DATE: 20171018
